FAERS Safety Report 5760069-9 (Version None)
Quarter: 2008Q2

REPORT INFORMATION
  Report Type: 
  Country: None (occurrence: None)
  Receive Date: 20080605
  Receipt Date: 20080307
  Transmission Date: 20081010
  Serious: Yes (Life-Threatening, Hospitalization)
  Sender: FDA-Public Use
  Company Number: US-BAYER-200810717BCC

PATIENT
  Age: 76 Year
  Sex: Female

DRUGS (15)
  1. ASPIRIN [Suspect]
     Indication: CARDIOVASCULAR EVENT PROPHYLAXIS
     Route: 048
     Dates: end: 20080118
  2. RHTHROMBIN [Suspect]
     Indication: HAEMOSTASIS
     Route: 061
     Dates: start: 20080123
  3. FISH OIL [Concomitant]
  4. IBUROFEN [Concomitant]
     Dates: end: 20080118
  5. MSM SUPPLEMENT [Concomitant]
     Dates: end: 20080118
  6. VITAMIN CAP [Concomitant]
  7. PAXIL [Concomitant]
  8. SMILING TEA [Concomitant]
     Indication: CONSTIPATION
  9. VYTORIN [Concomitant]
  10. CALCIUM [Concomitant]
  11. GLUCOSAMINE [Concomitant]
  12. LITHIUM CARBONATE [Concomitant]
  13. OXYCODONE HCL [Concomitant]
  14. LEVOTHYROXINE SODIUM [Concomitant]
  15. EZETIMIBE/SIMVASTATIN [Concomitant]

REACTIONS (2)
  - ARTHRALGIA [None]
  - PULMONARY EMBOLISM [None]
